FAERS Safety Report 16464032 (Version 4)
Quarter: 2019Q3

REPORT INFORMATION
  Report Type: Report from Study
  Country: BE (occurrence: BE)
  Receive Date: 20190621
  Receipt Date: 20190801
  Transmission Date: 20191004
  Serious: Yes (Hospitalization, Other)
  Sender: FDA-Public Use
  Company Number: BE-PFIZER INC-2019090794

PATIENT
  Age: 75 Year
  Sex: Male
  Weight: 65 kg

DRUGS (8)
  1. BEVACIZUMAB. [Suspect]
     Active Substance: BEVACIZUMAB
     Indication: COLORECTAL CANCER METASTATIC
     Dosage: 330 MG, CYCLIC (EVERY 2 WEEKS)
     Route: 042
     Dates: start: 20190131
  2. IRINOTECAN HCL [Suspect]
     Active Substance: IRINOTECAN HYDROCHLORIDE
     Indication: COLORECTAL CANCER METASTATIC
     Dosage: 243 MG, CYCLIC (EVERY 2 WEEKS)
     Route: 065
     Dates: start: 20190131
  3. FLUOROURACIL. [Suspect]
     Active Substance: FLUOROURACIL
     Dosage: 4873.9 MG, CYCLIC (EVERY 2 WEEKS)
     Route: 042
     Dates: start: 20190314
  4. FLUOROURACIL. [Suspect]
     Active Substance: FLUOROURACIL
     Indication: COLORECTAL CANCER METASTATIC
     Dosage: 5026.1 MG, CYCLIC (EVERY 2 WEEKS)
     Route: 065
     Dates: start: 20190131
  5. LEUCOVORIN [FOLINIC ACID] [Suspect]
     Active Substance: LEUCOVORIN
     Dosage: 4873.9 MG, CYCLIC (EVERY 2 WEEKS)
     Route: 042
     Dates: start: 20190314
  6. IRINOTECAN HCL [Suspect]
     Active Substance: IRINOTECAN HYDROCHLORIDE
     Dosage: 235 MG, CYCLIC (EVERY 2 WEEKS)
     Route: 042
     Dates: start: 20190314
  7. LEUCOVORIN [FOLINIC ACID] [Suspect]
     Active Substance: LEUCOVORIN
     Indication: COLORECTAL CANCER METASTATIC
     Dosage: 5026.1 MG, CYCLIC (EVERY 2 WEEKS)
     Route: 065
     Dates: start: 20190131
  8. BEVACIZUMAB. [Suspect]
     Active Substance: BEVACIZUMAB
     Dosage: 310 MG, UNK (EVERY 2 WEEKS)
     Route: 042
     Dates: start: 20190314

REACTIONS (9)
  - Pyrexia [Recovered/Resolved]
  - Small intestinal obstruction [Recovered/Resolved]
  - Diarrhoea [Not Recovered/Not Resolved]
  - Neutropenia [Recovered/Resolved]
  - Orthostatic hypotension [Not Recovered/Not Resolved]
  - Platelet count decreased [Not Recovered/Not Resolved]
  - Dermatitis allergic [Recovered/Resolved]
  - Anaemia [Not Recovered/Not Resolved]
  - Stomatitis [Recovered/Resolved]

NARRATIVE: CASE EVENT DATE: 20190131
